FAERS Safety Report 14031399 (Version 1)
Quarter: 2017Q4

REPORT INFORMATION
  Report Type: Spontaneous
  Country: FR (occurrence: FR)
  Receive Date: 20171003
  Receipt Date: 20171003
  Transmission Date: 20180321
  Serious: Yes (Other)
  Sender: FDA-Public Use
  Company Number: FR-MERCK KGAA-2028413

PATIENT
  Sex: Female

DRUGS (3)
  1. NOVOTHYROX [Suspect]
     Active Substance: LEVOTHYROXINE SODIUM
     Indication: PRODUCT USED FOR UNKNOWN INDICATION
  2. PROPRANOLOL [Concomitant]
     Active Substance: PROPRANOLOL HYDROCHLORIDE
  3. ALTEIS (OLMESARTAN MEDOXOMIL) [Concomitant]

REACTIONS (5)
  - Weight increased [Unknown]
  - Extrasystoles [Unknown]
  - Fatigue [Unknown]
  - Alopecia [Unknown]
  - Arrhythmia [Unknown]
